FAERS Safety Report 8267841-4 (Version None)
Quarter: 2012Q2

REPORT INFORMATION
  Report Type: 
  Country: None (occurrence: None)
  Receive Date: 20120409
  Receipt Date: 20120326
  Transmission Date: 20120825
  Serious: No
  Sender: FDA-Public Use
  Company Number: JP-UCBSA-045325

PATIENT
  Age: 76 Year
  Sex: Female
  Weight: 46 kg

DRUGS (4)
  1. MAXIPIME [Concomitant]
     Indication: INFECTION
     Dosage: TOTAL DAILY DOSE: 2 G
     Route: 042
     Dates: start: 20111029, end: 20111107
  2. THIOPENTAL SODIUM [Concomitant]
     Indication: SEDATION
     Dosage: TOTAL DAILY DOSE: 0.5 MG
     Route: 042
     Dates: start: 20111029, end: 20111107
  3. KEPPRA [Suspect]
     Indication: EPILEPSY
     Dosage: DAILY DOSE: 1000 MG
     Route: 048
     Dates: start: 20111102, end: 20111108
  4. KEPPRA [Suspect]
     Dosage: DAILY DOSE:500 MG
     Route: 048
     Dates: start: 20111101, end: 20111101

REACTIONS (3)
  - SYSTEMIC CANDIDA [None]
  - GENERAL PHYSICAL HEALTH DETERIORATION [None]
  - RASH [None]
